FAERS Safety Report 17543718 (Version 1)
Quarter: 2020Q1

REPORT INFORMATION
  Report Type: Spontaneous
  Country: US (occurrence: US)
  Receive Date: 20200316
  Receipt Date: 20200316
  Transmission Date: 20200409
  Serious: No
  Sender: FDA-Public Use
  Company Number: US-AUROBINDO-AUR-APL-2019-071123

PATIENT
  Sex: Male
  Weight: 72.5 kg

DRUGS (2)
  1. LEVOFLOXACIN INJECTION [Suspect]
     Active Substance: LEVOFLOXACIN
     Indication: PNEUMONIA
     Dosage: TAKEN TWO DOSES OF MEDICATION
     Route: 042
  2. LEVOFLOXACIN INJECTION [Suspect]
     Active Substance: LEVOFLOXACIN
     Indication: COUGH

REACTIONS (4)
  - Tendon rupture [Recovering/Resolving]
  - Muscle twitching [Recovering/Resolving]
  - Nervous system disorder [Recovering/Resolving]
  - Insomnia [Recovering/Resolving]
